FAERS Safety Report 20934517 (Version 1)
Quarter: 2022Q2

REPORT INFORMATION
  Report Type: Spontaneous
  Country: US (occurrence: US)
  Receive Date: 20220608
  Receipt Date: 20220608
  Transmission Date: 20220721
  Serious: No
  Sender: FDA-Public Use
  Company Number: US-ORGANON-O2206USA000495

PATIENT
  Age: 20 Year
  Sex: Female

DRUGS (2)
  1. NEXPLANON [Suspect]
     Active Substance: ETONOGESTREL
     Indication: Contraception
     Dosage: 1 IMPLANT
     Route: 059
     Dates: start: 20220602
  2. NEXPLANON [Suspect]
     Active Substance: ETONOGESTREL
     Indication: Menstrual cycle management

REACTIONS (3)
  - Implant site vesicles [Not Recovered/Not Resolved]
  - Fatigue [Not Recovered/Not Resolved]
  - Product use in unapproved indication [Unknown]

NARRATIVE: CASE EVENT DATE: 20220602
